FAERS Safety Report 24029708 (Version 1)
Quarter: 2024Q2

REPORT INFORMATION
  Report Type: Spontaneous
  Country: JP (occurrence: JP)
  Receive Date: 20240628
  Receipt Date: 20240628
  Transmission Date: 20240716
  Serious: Yes (Hospitalization, Disabling)
  Sender: FDA-Public Use
  Company Number: JP-ABBVIE-5815189

PATIENT
  Sex: Male
  Weight: 45 kg

DRUGS (5)
  1. RINVOQ [Suspect]
     Active Substance: UPADACITINIB
     Indication: Colitis ulcerative
     Dosage: FORM STRENGTH 15 MILLIGRAM
     Route: 048
     Dates: start: 20240530, end: 20240604
  2. LIALDA [Suspect]
     Active Substance: MESALAMINE
     Indication: Colitis ulcerative
     Dosage: 4800 MILLIGRAM
     Route: 048
     Dates: start: 20240516, end: 20240604
  3. PREDONINE [Suspect]
     Active Substance: PREDNISOLONE
     Indication: Colitis ulcerative
     Dosage: 30 MILLIGRAM
     Route: 041
     Dates: start: 20240531, end: 20240604
  4. PREDONINE [Suspect]
     Active Substance: PREDNISOLONE
     Indication: Colitis ulcerative
     Dosage: 50 MILLIGRAM
     Route: 041
     Dates: start: 20240516, end: 20240524
  5. PREDONINE [Suspect]
     Active Substance: PREDNISOLONE
     Indication: Colitis ulcerative
     Dosage: 40 MILLIGRAM
     Route: 041
     Dates: start: 20240525, end: 20240530

REACTIONS (2)
  - Intestinal ulcer perforation [Recovering/Resolving]
  - Melaena [Recovering/Resolving]

NARRATIVE: CASE EVENT DATE: 20240101
